FAERS Safety Report 9381478 (Version 2)
Quarter: 2013Q3

REPORT INFORMATION
  Report Type: Report from Study
  Country: US (occurrence: US)
  Receive Date: 20130703
  Receipt Date: 20130813
  Transmission Date: 20140515
  Serious: Yes (Hospitalization)
  Sender: FDA-Public Use
  Company Number: PHHO2013US008640

PATIENT
  Age: 66 Year
  Sex: Male

DRUGS (3)
  1. AFINITOR [Suspect]
     Indication: TRANSITIONAL CELL CARCINOMA
     Dosage: 5 MG, QD
     Route: 048
     Dates: start: 20130620, end: 20130624
  2. GEMCITABINE [Suspect]
     Indication: TRANSITIONAL CELL CARCINOMA
     Dosage: 800 MG/M2, UNK
     Dates: start: 20130620, end: 20130624
  3. CISPLATIN [Suspect]
     Indication: TRANSITIONAL CELL CARCINOMA
     Dosage: 35 MG/M2, UNK
     Dates: start: 20130620, end: 20130624

REACTIONS (3)
  - Polyuria [Not Recovered/Not Resolved]
  - Diarrhoea [Recovered/Resolved]
  - Oesophageal pain [Recovered/Resolved]
